FAERS Safety Report 5380570-X (Version None)
Quarter: 2007Q3

REPORT INFORMATION
  Report Type: 
  Country: None (occurrence: None)
  Receive Date: 20070706
  Receipt Date: 20070704
  Transmission Date: 20080115
  Serious: Yes (Hospitalization)
  Sender: FDA-Public Use
  Company Number: GB-BRISTOL-MYERS SQUIBB COMPANY-13836028

PATIENT
  Sex: Female
  Weight: 51 kg

DRUGS (6)
  1. FUNGILIN [Suspect]
     Indication: ORAL PAIN
     Route: 048
     Dates: start: 20050426, end: 20051027
  2. CHOLINE SALICYLATE [Concomitant]
     Route: 061
     Dates: start: 20021116
  3. DIAZEPAM [Concomitant]
     Indication: EPILEPSY
     Route: 048
     Dates: start: 19870210
  4. PARACETAMOL [Concomitant]
     Route: 048
     Dates: start: 20000516
  5. SODIUM FLUORIDE [Concomitant]
     Route: 048
     Dates: start: 19871216
  6. TEGRETOL [Concomitant]
     Indication: EPILEPSY
     Route: 048
     Dates: start: 19970801

REACTIONS (1)
  - ALOPECIA [None]
